FAERS Safety Report 21160328 (Version 2)
Quarter: 2022Q3

REPORT INFORMATION
  Report Type: Report from Study
  Country: FR (occurrence: None)
  Receive Date: 20220802
  Receipt Date: 20220817
  Transmission Date: 20221027
  Serious: Yes (Death, Other)
  Sender: FDA-Public Use
  Company Number: 2022A271738

PATIENT
  Age: 24829 Day
  Sex: Male
  Weight: 58 kg

DRUGS (3)
  1. EVUSHELD [Suspect]
     Active Substance: CILGAVIMAB\TIXAGEVIMAB
     Indication: COVID-19 prophylaxis
     Dosage: 300.0MG ONCE/SINGLE ADMINISTRATION
     Route: 030
     Dates: start: 20220322, end: 20220322
  2. CELLCEPT [Concomitant]
     Active Substance: MYCOPHENOLATE MOFETIL
     Indication: Immunosuppressant drug therapy
  3. PROGRAF [Concomitant]
     Active Substance: TACROLIMUS
     Indication: Immunosuppressant drug therapy

REACTIONS (1)
  - Intestinal ischaemia [Fatal]

NARRATIVE: CASE EVENT DATE: 20220617
